FAERS Safety Report 10407667 (Version 1)
Quarter: 2014Q3

REPORT INFORMATION
  Report Type: Spontaneous
  Country: US (occurrence: US)
  Receive Date: 20140825
  Receipt Date: 20140825
  Transmission Date: 20150326
  Serious: No
  Sender: FDA-Public Use
  Company Number: US-ASTRAZENECA-2014SE61027

PATIENT
  Age: 68 Year
  Sex: Female
  Weight: 68 kg

DRUGS (6)
  1. COREG [Concomitant]
     Active Substance: CARVEDILOL
     Indication: HEART RATE INCREASED
     Route: 048
     Dates: start: 2013
  2. NEXIUM [Suspect]
     Active Substance: ESOMEPRAZOLE MAGNESIUM
     Indication: BARRETT^S OESOPHAGUS
     Route: 048
     Dates: start: 2008
  3. CARITEN OTC [Concomitant]
     Indication: HYPERSENSITIVITY
     Dosage: NR PRN
     Route: 048
  4. ASPIRIN. [Concomitant]
     Active Substance: ASPIRIN
     Route: 048
  5. SIMVASTATIN. [Concomitant]
     Active Substance: SIMVASTATIN
     Indication: LOW DENSITY LIPOPROTEIN INCREASED
     Route: 048
  6. PREMPRO [Concomitant]
     Active Substance: ESTROGENS, CONJUGATED\MEDROXYPROGESTERONE ACETATE
     Indication: ALOPECIA
     Dosage: NR QOD
     Route: 048

REACTIONS (3)
  - Therapeutic response changed [Unknown]
  - Off label use [Unknown]
  - Alopecia [Unknown]

NARRATIVE: CASE EVENT DATE: 2008
